FAERS Safety Report 10350168 (Version 1)
Quarter: 2014Q3

REPORT INFORMATION
  Report Type: Report from Study
  Country: US (occurrence: US)
  Receive Date: 20140730
  Receipt Date: 20140730
  Transmission Date: 20150326
  Serious: No
  Sender: FDA-Public Use
  Company Number: US-ABBVIE-14P-163-1215246-00

PATIENT
  Sex: Male
  Weight: 118.04 kg

DRUGS (19)
  1. VYTORIN [Concomitant]
     Active Substance: EZETIMIBE\SIMVASTATIN
     Indication: BLOOD CHOLESTEROL INCREASED
  2. NIASPAN [Suspect]
     Active Substance: NIACIN
  3. METOPROLOL SUCCINATE. [Concomitant]
     Active Substance: METOPROLOL SUCCINATE
     Indication: HYPERTENSION
  4. METFORMIN [Concomitant]
     Active Substance: METFORMIN HYDROCHLORIDE
     Indication: DIABETES MELLITUS
  5. AMLODIPINE [Concomitant]
     Active Substance: AMLODIPINE BESYLATE
     Indication: HYPERTENSION
  6. OMEGA 3 [Concomitant]
     Active Substance: OMEGA-3 FATTY ACIDS
     Indication: SUPPLEMENTATION THERAPY
  7. NIASPAN [Suspect]
     Active Substance: NIACIN
  8. LOSARTAN / HIDROCLOROTIAZIDA [Concomitant]
     Indication: HYPERTENSION
  9. MULTIVITAMIN [Concomitant]
     Active Substance: VITAMINS
     Indication: SUPPLEMENTATION THERAPY
  10. NIASPAN [Suspect]
     Active Substance: NIACIN
     Indication: BLOOD CHOLESTEROL INCREASED
     Dates: start: 2009
  11. METFORMIN [Concomitant]
     Active Substance: METFORMIN HYDROCHLORIDE
     Indication: BLOOD CHOLESTEROL INCREASED
  12. CLOPIDOGREL [Concomitant]
     Active Substance: CLOPIDOGREL BISULFATE
     Indication: CORONARY ARTERIAL STENT INSERTION
  13. VITAMIN D3 [Concomitant]
     Active Substance: CHOLECALCIFEROL
     Indication: SUPPLEMENTATION THERAPY
  14. FENOFIBRATE. [Concomitant]
     Active Substance: FENOFIBRATE
     Indication: BLOOD CHOLESTEROL INCREASED
  15. CHOLESTYRAMINE. [Concomitant]
     Active Substance: CHOLESTYRAMINE
     Indication: BLOOD CHOLESTEROL INCREASED
  16. CALCIUM [Concomitant]
     Active Substance: CALCIUM
     Indication: SUPPLEMENTATION THERAPY
  17. LORATADINE. [Concomitant]
     Active Substance: LORATADINE
     Indication: HYPERSENSITIVITY
  18. AMLODIPINE [Concomitant]
     Active Substance: AMLODIPINE BESYLATE
     Indication: DRUG THERAPY
  19. VITAMIN B12 [Concomitant]
     Active Substance: CYANOCOBALAMIN
     Indication: DRUG THERAPY

REACTIONS (1)
  - Hot flush [Not Recovered/Not Resolved]

NARRATIVE: CASE EVENT DATE: 2012
